FAERS Safety Report 21016786 (Version 1)
Quarter: 2022Q2

REPORT INFORMATION
  Report Type: Spontaneous
  Country: US (occurrence: None)
  Receive Date: 20220627
  Receipt Date: 20220627
  Transmission Date: 20220721
  Serious: Yes (unspecified)
  Sender: FDA-Public Use
  Company Number: None

PATIENT
  Age: 67 Year
  Sex: Female
  Weight: 55.4 kg

DRUGS (1)
  1. DOCETAXEL [Suspect]
     Active Substance: DOCETAXEL
     Indication: Breast cancer
     Dosage: OTHER FREQUENCY : EVERY 21 DAYS;?
     Route: 041
     Dates: start: 20220524

REACTIONS (6)
  - Dyspepsia [None]
  - Chest discomfort [None]
  - Flushing [None]
  - Dyspnoea [None]
  - Therapy cessation [None]
  - Headache [None]

NARRATIVE: CASE EVENT DATE: 20220614
